FAERS Safety Report 15275259 (Version 3)
Quarter: 2018Q3

REPORT INFORMATION
  Report Type: Spontaneous
  Country: US (occurrence: US)
  Receive Date: 20180814
  Receipt Date: 20180926
  Transmission Date: 20181010
  Serious: Yes (Other)
  Sender: FDA-Public Use
  Company Number: US-LUPIN PHARMACEUTICALS INC.-2018-05702

PATIENT
  Age: 11 Month
  Sex: Male
  Weight: 10.43 kg

DRUGS (2)
  1. IBUPROFEN. [Concomitant]
     Active Substance: IBUPROFEN
     Indication: PYREXIA
     Dosage: 4 ML, QD, PRN
     Route: 048
     Dates: start: 20180730
  2. CEFDINIR FOR ORAL SUSPENSION USP 125 MG/5 ML [Suspect]
     Active Substance: CEFDINIR
     Indication: SINUSITIS
     Dosage: 3 ML, BID
     Route: 048
     Dates: start: 20180730

REACTIONS (6)
  - Screaming [Not Recovered/Not Resolved]
  - Crying [Unknown]
  - Blister [Not Recovered/Not Resolved]
  - Faeces discoloured [Not Recovered/Not Resolved]
  - Flatulence [Not Recovered/Not Resolved]
  - Diarrhoea [Not Recovered/Not Resolved]

NARRATIVE: CASE EVENT DATE: 20180730
